FAERS Safety Report 23027333 (Version 1)
Quarter: 2023Q4

REPORT INFORMATION
  Report Type: Spontaneous
  Country: US (occurrence: None)
  Receive Date: 20231003
  Receipt Date: 20231003
  Transmission Date: 20240110
  Serious: Yes (Life-Threatening, Hospitalization, Other)
  Sender: FDA-Public Use
  Company Number: None

PATIENT
  Age: 65 Year
  Sex: Male
  Weight: 112.5 kg

DRUGS (7)
  1. LUMASON [Suspect]
     Active Substance: SULFUR HEXAFLUORIDE
     Indication: X-ray with contrast
     Route: 042
     Dates: start: 20230901, end: 20230901
  2. CIALIS [Concomitant]
     Active Substance: TADALAFIL
  3. FLECAINIDE [Concomitant]
     Active Substance: FLECAINIDE
  4. LISINOPRIL [Concomitant]
     Active Substance: LISINOPRIL
  5. ELIQUIS [Concomitant]
     Active Substance: APIXABAN
  6. VITAMIN D NOS [Concomitant]
     Active Substance: VITAMIN D NOS
  7. MAGNESIUM [Concomitant]
     Active Substance: MAGNESIUM

REACTIONS (5)
  - Pulse absent [None]
  - Respiratory arrest [None]
  - Burning sensation [None]
  - Acute kidney injury [None]
  - Electrolyte imbalance [None]

NARRATIVE: CASE EVENT DATE: 20230901
